FAERS Safety Report 9613948 (Version 1)
Quarter: 2013Q4

REPORT INFORMATION
  Report Type: Spontaneous
  Country: US (occurrence: US)
  Receive Date: 20131011
  Receipt Date: 20131011
  Transmission Date: 20140711
  Serious: No
  Sender: FDA-Public Use
  Company Number: US-B.I. PHARMACEUTICALS,INC./RIDGEFIELD-2013-BI-31132BP

PATIENT
  Age: 83 Year
  Sex: Female
  Weight: 63 kg

DRUGS (9)
  1. AGGRENOX [Suspect]
     Indication: CEREBROVASCULAR ACCIDENT PROPHYLAXIS
     Dosage: DOSE PER APLLICATION: 25 MG / 200 MG; DAILY DOSE: 25MG/ 200 MG
     Route: 048
     Dates: start: 201309, end: 201309
  2. PLAVIX [Concomitant]
     Dosage: 75 MG
     Route: 048
  3. BENAZEPRIL [Concomitant]
     Dosage: 20 MG
     Route: 048
  4. BABY ASPIRIN [Concomitant]
     Dosage: 81 MG
     Route: 048
  5. VITMAIN D3 [Concomitant]
     Dosage: DOSE PER APPLICATION: 1 CAPSULE; DAILY DOSE: 1 CAPSULE
     Route: 048
  6. ATENOLOL [Concomitant]
     Dosage: 25 MG
     Route: 048
  7. NORVASC [Concomitant]
     Dosage: 5 MG
     Route: 048
  8. CALCIUM [Concomitant]
     Dosage: 1 ANZ
     Route: 048
  9. MULTIVITMAIN [Concomitant]
     Dosage: 1 ANZ
     Route: 048

REACTIONS (3)
  - Hypertension [Recovered/Resolved]
  - Dysphagia [Recovered/Resolved]
  - Anxiety [Recovered/Resolved]
